FAERS Safety Report 23111076 (Version 1)
Quarter: 2023Q4

REPORT INFORMATION
  Report Type: Report from Study
  Country: US (occurrence: US)
  Receive Date: 20231026
  Receipt Date: 20231026
  Transmission Date: 20240110
  Serious: Yes (Other)
  Sender: FDA-Public Use
  Company Number: US-JAZZ PHARMACEUTICALS-2020-US-018535

PATIENT
  Age: 64 Year

DRUGS (2)
  1. DEFITELIO [Suspect]
     Active Substance: DEFIBROTIDE SODIUM
     Indication: Prophylaxis
  2. DEFITELIO [Suspect]
     Active Substance: DEFIBROTIDE SODIUM
     Indication: Venoocclusive liver disease

REACTIONS (9)
  - Renal failure [Unknown]
  - Ascites [Unknown]
  - Lung disorder [Unknown]
  - Hepatomegaly [Unknown]
  - Coagulopathy [Unknown]
  - Abdominal pain upper [Unknown]
  - Blood urea increased [Unknown]
  - Pleural effusion [Unknown]
  - Off label use [Unknown]
